FAERS Safety Report 6751790-4 (Version None)
Quarter: 2010Q2

REPORT INFORMATION
  Report Type: 
  Country: None (occurrence: None)
  Receive Date: 20100528
  Receipt Date: 20100518
  Transmission Date: 20101027
  Serious: Yes (Death, Hospitalization)
  Sender: FDA-Public Use
  Company Number: 7005137

PATIENT
  Age: 32 Year
  Sex: Male

DRUGS (5)
  1. REBIF [Suspect]
     Indication: MULTIPLE SCLEROSIS
     Dosage: 44 MCG, 3 IN 1 WK, SUBCUTANEOUS
     Route: 058
     Dates: start: 20090721, end: 20100515
  2. GABAPENTIN [Concomitant]
  3. ZANAFLEX [Concomitant]
  4. LEXAPRO [Concomitant]
  5. UNSPECIFIED ANTIBIOTICS (ANTIBIOTICS) [Concomitant]

REACTIONS (9)
  - CONVULSION [None]
  - DECUBITUS ULCER [None]
  - DEHYDRATION [None]
  - DIABETES MELLITUS [None]
  - HYPOTENSION [None]
  - MULTIPLE SCLEROSIS [None]
  - PNEUMONIA [None]
  - RESPIRATORY DISORDER [None]
  - STAPHYLOCOCCAL SEPSIS [None]
